FAERS Safety Report 9470041 (Version 4)
Quarter: 2020Q4

REPORT INFORMATION
  Report Type: Spontaneous
  Country: US (occurrence: US)
  Receive Date: 20130822
  Receipt Date: 20201124
  Transmission Date: 20210114
  Serious: Yes (Death, Other)
  Sender: FDA-Public Use
  Company Number: US-NAPPMUNDI-USA-2010-0055909

PATIENT
  Age: 24 Year
  Sex: Male

DRUGS (2)
  1. OXYCONTIN [Suspect]
     Active Substance: OXYCODONE HYDROCHLORIDE
     Indication: PRODUCT USED FOR UNKNOWN INDICATION
     Dosage: UNK
     Route: 048
  2. HEROIN [Suspect]
     Active Substance: DIAMORPHINE
     Indication: DRUG ABUSE
     Dosage: UNKNOWN
     Route: 065

REACTIONS (11)
  - Pain [Unknown]
  - Generalised tonic-clonic seizure [Unknown]
  - Overdose [Fatal]
  - Blood glucose decreased [Unknown]
  - Arthralgia [Unknown]
  - Fall [Unknown]
  - Confusional state [Unknown]
  - Drug dependence [Unknown]
  - Substance abuse [Unknown]
  - Limb injury [Unknown]
  - Dysarthria [Unknown]

NARRATIVE: CASE EVENT DATE: 20110901
